FAERS Safety Report 13932569 (Version 4)
Quarter: 2017Q4

REPORT INFORMATION
  Report Type: Report from Study
  Country: US (occurrence: US)
  Receive Date: 20170904
  Receipt Date: 20171107
  Transmission Date: 20180320
  Serious: Yes (Other)
  Sender: FDA-Public Use
  Company Number: US-AMGEN-USASL2017134327

PATIENT
  Age: 5 Year
  Sex: Female

DRUGS (5)
  1. ENBREL [Suspect]
     Active Substance: ETANERCEPT
     Indication: JUVENILE IDIOPATHIC ARTHRITIS
     Dosage: 17.5 MG, QWK
     Route: 058
     Dates: start: 201706, end: 2017
  2. ENBREL [Suspect]
     Active Substance: ETANERCEPT
     Dosage: 17.5 MG, QWK
     Route: 058
     Dates: start: 2017
  3. MTX [Suspect]
     Active Substance: METHOTREXATE SODIUM
     Indication: JUVENILE IDIOPATHIC ARTHRITIS
     Dosage: 75 MG, QWK
     Route: 065
     Dates: start: 20170710, end: 2017
  4. MTX [Suspect]
     Active Substance: METHOTREXATE SODIUM
     Dosage: 75 MG, QWK
     Route: 065
     Dates: start: 2017
  5. BACTRIM [Suspect]
     Active Substance: SULFAMETHOXAZOLE\TRIMETHOPRIM
     Indication: ESCHERICHIA URINARY TRACT INFECTION
     Dosage: UNK
     Route: 065
     Dates: start: 2017

REACTIONS (4)
  - Viral infection [Unknown]
  - Immunosuppression [Unknown]
  - Escherichia urinary tract infection [Recovered/Resolved]
  - Rash [Unknown]

NARRATIVE: CASE EVENT DATE: 2017
